FAERS Safety Report 9567705 (Version 1)
Quarter: 2013Q3

REPORT INFORMATION
  Report Type: Spontaneous
  Country: US (occurrence: US)
  Receive Date: 20130930
  Receipt Date: 20130930
  Transmission Date: 20140515
  Serious: No
  Sender: FDA-Public Use
  Company Number: US-AMGEN-USASP2013024416

PATIENT
  Age: 54 Year
  Sex: Female
  Weight: 56.69 kg

DRUGS (9)
  1. ENBREL [Suspect]
     Indication: PRODUCT USED FOR UNKNOWN INDICATION
     Dosage: 50 MG, QWK
     Route: 058
  2. METHOTREXATE [Concomitant]
     Dosage: 2.5 MG, UNK
     Route: 048
  3. IBANDRONATE [Concomitant]
     Dosage: 150 MG, UNK
     Route: 048
  4. ADVIL                              /00044201/ [Concomitant]
     Dosage: 200 MG, UNK
     Route: 048
  5. KRILL OMEGA RED OIL [Concomitant]
     Dosage: 1000 MG, UNK
     Route: 048
  6. VITAMIN D                          /00107901/ [Concomitant]
     Dosage: 1000 UNIT, UNK
     Route: 048
  7. AVAR E [Concomitant]
     Dosage: 10-5 %
  8. FOLIC ACID [Concomitant]
     Dosage: 20 MG, UNK
     Route: 048
  9. CO Q-10 [Concomitant]
     Dosage: 100 MG, UNK
     Route: 048

REACTIONS (4)
  - Epistaxis [Unknown]
  - Faeces hard [Unknown]
  - Wound infection [Unknown]
  - Haemorrhage [Unknown]
